FAERS Safety Report 9342177 (Version 2)
Quarter: 2013Q3

REPORT INFORMATION
  Report Type: Report from Study
  Country: JP (occurrence: JP)
  Receive Date: 20130611
  Receipt Date: 20130909
  Transmission Date: 20140515
  Serious: Yes (Hospitalization)
  Sender: FDA-Public Use
  Company Number: JP-AMGEN-JPNCT2013040791

PATIENT
  Age: 86 Year
  Sex: Male
  Weight: 52 kg

DRUGS (35)
  1. DARBEPOETIN ALFA [Suspect]
     Indication: NEPHROGENIC ANAEMIA
     Dosage: 60 MUG, QD
     Route: 058
     Dates: start: 20101111, end: 20101111
  2. DARBEPOETIN ALFA [Suspect]
     Dosage: 60 MUG, QD
     Route: 058
     Dates: start: 20101208, end: 20101208
  3. DARBEPOETIN ALFA [Suspect]
     Dosage: 60 MUG, QD
     Route: 058
     Dates: start: 20110106, end: 20110106
  4. DARBEPOETIN ALFA [Suspect]
     Dosage: 60 MUG, QD
     Route: 058
     Dates: start: 20110210, end: 20110210
  5. DARBEPOETIN ALFA [Suspect]
     Dosage: 60 MUG, QD
     Route: 058
     Dates: start: 20110316, end: 20110316
  6. DARBEPOETIN ALFA [Suspect]
     Dosage: 60 MUG, QD
     Route: 058
     Dates: start: 20110407, end: 20110407
  7. DARBEPOETIN ALFA [Suspect]
     Dosage: 60 MUG, QD
     Route: 058
     Dates: start: 20110506, end: 20110506
  8. DARBEPOETIN ALFA [Suspect]
     Dosage: 60 MUG, Q4WK
     Route: 058
     Dates: start: 20110602, end: 20110728
  9. DARBEPOETIN ALFA [Suspect]
     Dosage: 60 MUG, QD
     Route: 058
     Dates: start: 20110818, end: 20110818
  10. DARBEPOETIN ALFA [Suspect]
     Dosage: 60 MUG, QD
     Route: 058
     Dates: start: 20110915, end: 20110915
  11. DARBEPOETIN ALFA [Suspect]
     Dosage: 60 MUG, QD
     Route: 058
     Dates: start: 20111027, end: 20111027
  12. DARBEPOETIN ALFA [Suspect]
     Dosage: 90 MUG, QD
     Route: 058
     Dates: start: 20111208, end: 20111208
  13. DARBEPOETIN ALFA [Suspect]
     Dosage: 60 MUG, QD
     Route: 058
     Dates: start: 20120104, end: 20120104
  14. DARBEPOETIN ALFA [Suspect]
     Dosage: 60 MUG, QD
     Route: 058
     Dates: start: 20120308, end: 20120308
  15. DARBEPOETIN ALFA [Suspect]
     Dosage: 60 MUG, QD
     Route: 058
     Dates: start: 20120426, end: 20120426
  16. DARBEPOETIN ALFA [Suspect]
     Dosage: 60 MUG, QD
     Route: 058
     Dates: start: 20120531, end: 20120531
  17. DARBEPOETIN ALFA [Suspect]
     Dosage: 60 MUG, QD
     Route: 058
     Dates: start: 20120628, end: 20120628
  18. DARBEPOETIN ALFA [Suspect]
     Dosage: 60 MUG, QD
     Route: 058
     Dates: start: 20120802, end: 20120802
  19. DARBEPOETIN ALFA [Suspect]
     Dosage: 60 MUG, QD
     Route: 058
     Dates: start: 20120906, end: 20120906
  20. DARBEPOETIN ALFA [Suspect]
     Dosage: 60 MUG, QD
     Route: 058
     Dates: start: 20121018
  21. ARTIST [Concomitant]
     Dosage: UNK
     Route: 048
  22. LIVALO [Concomitant]
     Dosage: UNK
     Route: 048
  23. FRANDOL [Concomitant]
     Dosage: UNK
     Route: 062
  24. BAYASPIRIN [Concomitant]
     Indication: DIABETIC NEPHROPATHY
     Dosage: UNK
     Route: 048
  25. FERROMIA [Concomitant]
     Dosage: UNK
     Route: 048
  26. LASIX [Concomitant]
     Indication: DIABETIC NEPHROPATHY
     Dosage: UNK
     Route: 048
  27. INNOLET 30R [Concomitant]
     Dosage: UNK
     Route: 065
  28. CALBLOCK [Concomitant]
     Dosage: UNK
     Route: 048
  29. TAKEPRON [Concomitant]
     Dosage: UNK
     Route: 048
  30. PROMAC [Concomitant]
     Dosage: UNK
     Route: 048
  31. PANTOSIN [Concomitant]
     Dosage: UNK
     Route: 048
  32. MAGNESIUM OXIDE [Concomitant]
     Dosage: UNK
     Route: 048
  33. ALOSENN [Concomitant]
     Dosage: UNK
     Route: 048
  34. FLIVAS [Concomitant]
     Dosage: UNK
     Route: 048
  35. MIRCERA [Concomitant]
     Indication: DIABETIC NEPHROPATHY
     Dosage: 100 MUG, UNK
     Route: 042
     Dates: start: 20120119

REACTIONS (1)
  - Cardiac failure [Recovered/Resolved]
